FAERS Safety Report 17217535 (Version 1)
Quarter: 2019Q4

REPORT INFORMATION
  Report Type: Report from Study
  Country: PK (occurrence: PK)
  Receive Date: 20191231
  Receipt Date: 20191231
  Transmission Date: 20200122
  Serious: Yes (Death)
  Sender: FDA-Public Use
  Company Number: PK-ROCHE-2510680

PATIENT
  Age: 63 Year
  Sex: Male

DRUGS (2)
  1. RISTOVA [Suspect]
     Active Substance: RITUXIMAB
     Indication: DIFFUSE LARGE B-CELL LYMPHOMA
     Route: 065
  2. MABTHERA [Suspect]
     Active Substance: RITUXIMAB
     Indication: DIFFUSE LARGE B-CELL LYMPHOMA
     Route: 058
     Dates: start: 20191121

REACTIONS (1)
  - Asthenia [Fatal]
